FAERS Safety Report 13083186 (Version 1)
Quarter: 2017Q1

REPORT INFORMATION
  Report Type: Spontaneous
  Country: US (occurrence: US)
  Receive Date: 20170104
  Receipt Date: 20170104
  Transmission Date: 20170428
  Serious: Yes (Other)
  Sender: FDA-Public Use
  Company Number: US-ROCHE-1874126

PATIENT
  Age: 71 Year
  Sex: Female
  Weight: 71.05 kg

DRUGS (8)
  1. BENADRYL [Suspect]
     Active Substance: DIPHENHYDRAMINE HYDROCHLORIDE
     Indication: PREMEDICATION
     Dosage: NO
     Route: 042
     Dates: start: 20160601
  2. RITUXAN [Suspect]
     Active Substance: RITUXIMAB
     Indication: RHEUMATOID ARTHRITIS
     Dosage: NO
     Route: 042
     Dates: start: 20160601
  3. RITUXAN [Suspect]
     Active Substance: RITUXIMAB
     Dosage: NO
     Route: 042
     Dates: start: 20160615
  4. CORTISONE [Concomitant]
     Active Substance: CORTISONE\HYDROCORTISONE
     Indication: PREMEDICATION
     Dosage: NO
     Route: 042
     Dates: start: 20160601
  5. CLINORIL [Concomitant]
     Active Substance: SULINDAC
     Indication: RHEUMATOID ARTHRITIS
     Dosage: NO
     Route: 048
  6. ACTEMRA [Suspect]
     Active Substance: TOCILIZUMAB
     Indication: RHEUMATOID ARTHRITIS
     Dosage: NO
     Route: 042
     Dates: end: 20160504
  7. CORTISONE [Concomitant]
     Active Substance: CORTISONE\HYDROCORTISONE
     Dosage: NO
     Route: 042
     Dates: start: 20160615
  8. ACTEMRA [Suspect]
     Active Substance: TOCILIZUMAB
     Dosage: YES
     Route: 042
     Dates: start: 20161228

REACTIONS (7)
  - Nephropathy [Not Recovered/Not Resolved]
  - Peripheral swelling [Recovered/Resolved]
  - Back disorder [Not Recovered/Not Resolved]
  - Drug ineffective [Unknown]
  - Fatigue [Recovered/Resolved]
  - Labile blood pressure [Recovered/Resolved]
  - Unevaluable event [Recovered/Resolved]

NARRATIVE: CASE EVENT DATE: 20160601
